FAERS Safety Report 8801768 (Version 2)
Quarter: 2012Q4

REPORT INFORMATION
  Report Type: 
  Country: ZA (occurrence: ZA)
  Receive Date: 20120921
  Receipt Date: 20121004
  Transmission Date: 20130627
  Serious: Yes (Hospitalization)
  Sender: FDA-Public Use
  Company Number: ZA-SANOFI-AVENTIS-2012SA066042

PATIENT
  Age: 75 Year
  Sex: Male

DRUGS (9)
  1. LANTUS SOLOSTAR [Suspect]
     Indication: TYPE 2 DIABETES MELLITUS
     Route: 058
     Dates: start: 201202, end: 201208
  2. LANTUS SOLOSTAR [Suspect]
     Indication: TYPE 2 DIABETES MELLITUS
     Route: 058
     Dates: start: 201208
  3. SOLOSTAR [Suspect]
     Indication: DEVICE THERAPY
     Dates: start: 201202, end: 201208
  4. SOLOSTAR [Suspect]
     Indication: DEVICE THERAPY
  5. GLUCOPHAGE [Concomitant]
     Indication: DIABETES
     Dosage: frequency: at night (nocte)
     Route: 048
  6. SIMVASTATIN [Concomitant]
     Indication: CHOLESTEROL
     Dosage: frequency: at night (nocte)
     Route: 048
  7. LISINOPRIL [Concomitant]
     Indication: HYPERTENSION
     Dosage: frequency: mane
     Route: 048
  8. AMLOC [Concomitant]
     Indication: HYPERTENSION
     Dosage: frequency: mane
     Route: 048
  9. ECOTRIN [Concomitant]
     Indication: PAIN
     Dosage: frequency: mane
     Route: 048

REACTIONS (1)
  - Leg amputation [Recovered/Resolved]
